FAERS Safety Report 6666587-3 (Version None)
Quarter: 2010Q2

REPORT INFORMATION
  Report Type: 
  Country: None (occurrence: None)
  Receive Date: 20100404
  Receipt Date: 20100324
  Transmission Date: 20101027
  Serious: No
  Sender: FDA-Public Use
  Company Number: US-ALLERGAN-1003694US

PATIENT
  Sex: Male

DRUGS (3)
  1. ZYMAR [Suspect]
     Indication: CONJUNCTIVITIS
     Dosage: UNK
     Route: 047
     Dates: start: 20100318
  2. OPTI FREE [Concomitant]
  3. RENU [Concomitant]

REACTIONS (1)
  - VISION BLURRED [None]
